FAERS Safety Report 9439313 (Version 2)
Quarter: 2013Q3

REPORT INFORMATION
  Report Type: Spontaneous
  Country: US (occurrence: US)
  Receive Date: 20130804
  Receipt Date: 20130822
  Transmission Date: 20140515
  Serious: No
  Sender: FDA-Public Use
  Company Number: US-009507513-1307USA016260

PATIENT
  Sex: Female

DRUGS (4)
  1. MAXALT [Suspect]
     Indication: MIGRAINE
     Dosage: 10 MG, PRN
     Route: 048
     Dates: start: 201105
  2. CELEBREX [Concomitant]
  3. SYNTHROID [Concomitant]
  4. CYTOMEL [Concomitant]

REACTIONS (1)
  - Drug ineffective [Unknown]
